FAERS Safety Report 6165414-0 (Version None)
Quarter: 2009Q2

REPORT INFORMATION
  Report Type: 
  Country: None (occurrence: None)
  Receive Date: 20090423
  Receipt Date: 20090416
  Transmission Date: 20091009
  Serious: Yes (Other)
  Sender: FDA-Public Use
  Company Number: IT-WATSON-2009-02597

PATIENT
  Age: 43 Year
  Sex: Male

DRUGS (2)
  1. PREDNISONE (WATSON LABORATORIES) [Suspect]
     Indication: COLITIS ULCERATIVE
     Dosage: 50 MG, DAILY
     Route: 048
  2. PREDNISONE (WATSON LABORATORIES) [Suspect]
     Dosage: 60 MG, DAILY
     Route: 042

REACTIONS (1)
  - KAPOSI'S SARCOMA [None]
